FAERS Safety Report 9817593 (Version 1)
Quarter: 2014Q1

REPORT INFORMATION
  Report Type: Report from Study
  Country: GR (occurrence: GR)
  Receive Date: 20140115
  Receipt Date: 20140115
  Transmission Date: 20141002
  Serious: Yes (Other)
  Sender: FDA-Public Use
  Company Number: GR-ROCHE-1332095

PATIENT
  Age: 76 Year
  Sex: Male

DRUGS (9)
  1. BEVACIZUMAB [Suspect]
     Indication: NON-SMALL CELL LUNG CANCER
     Dosage: TOTAL
     Route: 042
     Dates: start: 20110414, end: 20110728
  2. ERLOTINIB [Suspect]
     Indication: NON-SMALL CELL LUNG CANCER
     Route: 048
     Dates: start: 20120823, end: 20130905
  3. CARBOPLATIN [Concomitant]
     Indication: NON-SMALL CELL LUNG CANCER
     Route: 042
  4. PEMETREXED [Concomitant]
     Indication: NON-SMALL CELL LUNG CANCER
     Route: 042
  5. ZARZIO [Concomitant]
     Dosage: 2 INJECTION PER CYCLE
     Route: 065
  6. MEDROL [Concomitant]
     Dosage: 3 PILLS PER CYCLE,
     Route: 065
  7. ZANTAC [Concomitant]
     Dosage: REPORTED AS ZANTAC 150 2 PER CYCLE
     Route: 065
  8. ZURCAZOL [Concomitant]
     Dosage: 1 PER CYCLE
     Route: 065
  9. VIBRAMYCIN (GREECE) [Concomitant]
     Dosage: 2 TOTALLY
     Route: 065

REACTIONS (4)
  - Rash [Unknown]
  - Alopecia [Unknown]
  - Disease progression [Unknown]
  - Gastrointestinal disorder [Unknown]
